FAERS Safety Report 9853485 (Version 2)
Quarter: 2014Q1

REPORT INFORMATION
  Report Type: Spontaneous
  Country: US (occurrence: US)
  Receive Date: 20140129
  Receipt Date: 20140203
  Transmission Date: 20141002
  Serious: Yes (Hospitalization)
  Sender: FDA-Public Use
  Company Number: US-PERRIGO-14US000734

PATIENT
  Age: 28 Year
  Sex: Female
  Weight: 90.7 kg

DRUGS (1)
  1. IBUPROFEN 200MG-DIPHENHYDRAMINE CITRATE 38 MG 050 [Suspect]
     Indication: INTENTIONAL OVERDOSE
     Dosage: 20-30 TABLETS, SINGLE
     Route: 048
     Dates: start: 20140122, end: 20140122

REACTIONS (2)
  - Intentional overdose [Recovered/Resolved]
  - Blood pressure increased [Not Recovered/Not Resolved]
